FAERS Safety Report 16908468 (Version 3)
Quarter: 2020Q4

REPORT INFORMATION
  Report Type: Report from Study
  Country: US (occurrence: US)
  Receive Date: 20191011
  Receipt Date: 20201202
  Transmission Date: 20210113
  Serious: Yes (Hospitalization)
  Sender: FDA-Public Use
  Company Number: US-ROCHE-2425484

PATIENT
  Age: 71 Year
  Sex: Male
  Weight: 98.9 kg

DRUGS (2)
  1. ATEZOLIZUMAB. [Suspect]
     Active Substance: ATEZOLIZUMAB
     Indication: GENITOURINARY TRACT NEOPLASM
  2. ATEZOLIZUMAB. [Suspect]
     Active Substance: ATEZOLIZUMAB
     Indication: BLADDER CANCER
     Dosage: OVER 60 MINUTES ON DAY 1?START DATE OF COURSE ASSOCIATED WITH EXPEDITED REPORT: 30/MAY/2019 (LAST AD
     Route: 042
     Dates: start: 20190507

REACTIONS (1)
  - Hepatic failure [Recovered/Resolved]

NARRATIVE: CASE EVENT DATE: 20190709
